FAERS Safety Report 15375051 (Version 1)
Quarter: 2018Q4

REPORT INFORMATION
  Report Type: Report from Study
  Country: US (occurrence: US)
  Receive Date: 20180912
  Receipt Date: 20180912
  Transmission Date: 20190204
  Serious: Yes (Other)
  Sender: FDA-Public Use
  Company Number: US-TAIHO ONCOLOGY  INC-EU-2018-00570

PATIENT
  Age: 57 Year
  Sex: Male
  Weight: 86.26 kg

DRUGS (2)
  1. MIRALAX [Concomitant]
     Active Substance: POLYETHYLENE GLYCOL 3350
     Dosage: NI
  2. LONSURF [Suspect]
     Active Substance: TIPIRACIL HYDROCHLORIDE\TRIFLURIDINE
     Indication: COLON CANCER METASTATIC
     Dosage: CYCLE 2 STARTED ON 17APR2018
     Route: 048
     Dates: start: 20180320, end: 20180428

REACTIONS (13)
  - Haemoptysis [Unknown]
  - Drug ineffective [Unknown]
  - Incontinence [Unknown]
  - Vomiting [Unknown]
  - Haemorrhage [Unknown]
  - Disease progression [Unknown]
  - Inappropriate schedule of product administration [Unknown]
  - Constipation [Recovering/Resolving]
  - Product dose omission [Unknown]
  - Hypersomnia [Unknown]
  - Rectal haemorrhage [Unknown]
  - Epistaxis [Unknown]
  - Haematochezia [Unknown]

NARRATIVE: CASE EVENT DATE: 2018
